FAERS Safety Report 19951145 (Version 1)
Quarter: 2021Q4

REPORT INFORMATION
  Report Type: Spontaneous
  Country: FI (occurrence: FI)
  Receive Date: 20211014
  Receipt Date: 20211014
  Transmission Date: 20220304
  Serious: Yes (Other)
  Sender: FDA-Public Use
  Company Number: FI-ABBVIE-21K-055-4115384-00

PATIENT
  Age: 37 Year
  Sex: Female

DRUGS (7)
  1. VALPROATE SODIUM [Suspect]
     Active Substance: VALPROATE SODIUM
     Indication: Epilepsy
     Route: 065
  2. DESMOPRESSIN ACETATE [Suspect]
     Active Substance: DESMOPRESSIN ACETATE
     Indication: Diabetes insipidus
     Route: 045
     Dates: start: 198301
  3. LORAZEPAM [Suspect]
     Active Substance: LORAZEPAM
     Indication: Anxiety disorder
     Dosage: AM
     Route: 065
  4. CLOZAPINE [Suspect]
     Active Substance: CLOZAPINE
     Indication: Product used for unknown indication
     Dosage: PM
     Route: 065
     Dates: start: 2017, end: 2017
  5. CLOZAPINE [Suspect]
     Active Substance: CLOZAPINE
     Dosage: PM
     Route: 065
     Dates: start: 2017, end: 2017
  6. CLOZAPINE [Suspect]
     Active Substance: CLOZAPINE
     Route: 065
     Dates: start: 2017, end: 2017
  7. LAMICTAL [Suspect]
     Active Substance: LAMOTRIGINE
     Indication: Dyskinesia
     Route: 065

REACTIONS (15)
  - Memory impairment [Unknown]
  - Muscle twitching [Unknown]
  - Neurogenic bladder [Unknown]
  - Thirst decreased [Unknown]
  - Decreased appetite [Unknown]
  - Sluggishness [Unknown]
  - Electroencephalogram abnormal [Unknown]
  - Fatigue [Unknown]
  - Somnolence [Unknown]
  - Dyskinesia [Unknown]
  - Disturbance in attention [Unknown]
  - Seizure [Unknown]
  - Anxiety disorder [Unknown]
  - Epilepsy [Unknown]
  - Adverse event [Unknown]
